FAERS Safety Report 5383547-3 (Version None)
Quarter: 2007Q3

REPORT INFORMATION
  Report Type: 
  Country: None (occurrence: None)
  Receive Date: 20070706
  Receipt Date: 20070625
  Transmission Date: 20080115
  Serious: Yes (Hospitalization)
  Sender: FDA-Public Use
  Company Number: 2007-160460-NL

PATIENT
  Age: 40 Year
  Sex: Male

DRUGS (4)
  1. MIRTAZAPINE [Suspect]
     Dosage: 15 MG/30 MG ORAL
     Route: 048
     Dates: start: 20070101, end: 20070117
  2. MIRTAZAPINE [Suspect]
     Dosage: 15 MG/30 MG ORAL
     Route: 048
     Dates: start: 20070118, end: 20070125
  3. LORAZEPAM [Concomitant]
  4. ZOLPIDEM TARTRATE [Concomitant]

REACTIONS (2)
  - RESTLESS LEGS SYNDROME [None]
  - SOMNOLENCE [None]
